FAERS Safety Report 25895513 (Version 1)
Quarter: 2025Q4

REPORT INFORMATION
  Report Type: Spontaneous
  Country: EU (occurrence: EU)
  Receive Date: 20251008
  Receipt Date: 20251008
  Transmission Date: 20260117
  Serious: Yes (Life-Threatening, Other)
  Sender: BAXTER
  Company Number: None

PATIENT
  Age: 31 Year
  Sex: Male
  Weight: 85 kg

DRUGS (4)
  1. PROPOFOL [Suspect]
     Active Substance: PROPOFOL
     Indication: Sedation
     Dosage: 4MG/KG/UUR (PROPOFOL INJECTION EMULSION 10MG/ML) (DOSAGE FORM: EMULSION FOR INJECTION)
     Route: 065
     Dates: start: 20240406, end: 20240410
  2. NOREPINEPHRINE BITARTRATE [Concomitant]
     Active Substance: NOREPINEPHRINE BITARTRATE
     Dosage: INFUSION FLUID, 0.2 MG/ML (MILLIGRAM PER MILLILITER)
     Route: 065
  3. REMIFENTANIL [Concomitant]
     Active Substance: REMIFENTANIL
     Dosage: INFUSION FLUID, 0.02 MG/ML (MILLIGRAM PER MILLILITER)
     Route: 065
  4. INSULIN ASPART [Concomitant]
     Active Substance: INSULIN ASPART
     Dosage: INFUSION FLUID, 1 UNIT/ML (UNITS PER MILLILITER)
     Route: 065

REACTIONS (3)
  - Blood creatine phosphokinase increased [Recovered/Resolved]
  - Metabolic acidosis [Recovered/Resolved]
  - Renal impairment [Recovered/Resolved]
